FAERS Safety Report 13331061 (Version 2)
Quarter: 2017Q2

REPORT INFORMATION
  Report Type: Other
  Country: JP (occurrence: JP)
  Receive Date: 20170313
  Receipt Date: 20170418
  Transmission Date: 20170830
  Serious: Yes (Other)
  Sender: FDA-Public Use
  Company Number: JP-ACTELION-A-CH2017-150708

PATIENT
  Age: 63 Year
  Sex: Female

DRUGS (3)
  1. BOSENTAN. [Suspect]
     Active Substance: BOSENTAN
     Indication: SYSTEMIC SCLERODERMA
     Dosage: UNK
     Route: 048
  2. BERAPROST [Concomitant]
     Active Substance: BERAPROST
  3. PREDNISONE. [Concomitant]
     Active Substance: PREDNISONE
     Dosage: 20 MG, QD

REACTIONS (18)
  - Renal impairment [Recovering/Resolving]
  - Hypoalbuminaemia [Recovering/Resolving]
  - Skin hypertrophy [Recovering/Resolving]
  - Paracentesis [Unknown]
  - Blood lactate dehydrogenase increased [Recovering/Resolving]
  - Scleroderma renal crisis [Recovering/Resolving]
  - Dialysis [Unknown]
  - Ascites [Not Recovered/Not Resolved]
  - Red blood cell schistocytes present [Unknown]
  - ADAMTS13 activity abnormal [Recovering/Resolving]
  - Pericardial effusion [Recovering/Resolving]
  - Pleural effusion [Recovering/Resolving]
  - Thrombotic thrombocytopenic purpura [Recovered/Resolved]
  - Plasmapheresis [Unknown]
  - Anaemia [Unknown]
  - Pyrexia [Recovered/Resolved]
  - Platelet count decreased [Recovered/Resolved]
  - Interstitial lung disease [Recovering/Resolving]
